FAERS Safety Report 8294222-X (Version None)
Quarter: 2012Q2

REPORT INFORMATION
  Report Type: 
  Country: None (occurrence: None)
  Receive Date: 20120418
  Receipt Date: 20120416
  Transmission Date: 20120825
  Serious: Yes (Hospitalization)
  Sender: FDA-Public Use
  Company Number: PHHO2012IL003544

PATIENT
  Sex: Female
  Weight: 91.7 kg

DRUGS (8)
  1. LETROZOLE [Suspect]
     Indication: BREAST CANCER METASTATIC
     Dosage: 2.5 MG, QD
     Dates: start: 20120214, end: 20120320
  2. ESCITALOPRAM [Concomitant]
     Indication: AFFECTIVE DISORDER
     Dosage: 10 MG, QD
     Dates: start: 20080801
  3. XELODA [Concomitant]
     Indication: BREAST CANCER METASTATIC
     Dosage: 1 GX2 PER DAY
     Dates: start: 20120321
  4. LEVOTHYROXINE SODIUM [Concomitant]
     Indication: HYPERTHYROIDISM
     Dosage: 100 MG, QD
     Dates: start: 19920101
  5. ASPIRIN [Concomitant]
  6. CANNABIS [Concomitant]
     Indication: PAIN
     Dosage: UNK
     Dates: start: 20120207
  7. NORMITEN [Concomitant]
     Indication: HYPERTENSION
     Dosage: 25 MG, QD
     Dates: start: 20020101
  8. AFINITOR [Suspect]
     Indication: BREAST CANCER METASTATIC
     Dosage: 10 MG, QD
     Dates: start: 20120214, end: 20120226

REACTIONS (3)
  - CONFUSIONAL STATE [None]
  - HYPERCALCAEMIA [None]
  - ATRIAL FIBRILLATION [None]
